FAERS Safety Report 15459789 (Version 1)
Quarter: 2018Q4

REPORT INFORMATION
  Report Type: Spontaneous
  Country: US (occurrence: US)
  Receive Date: 20181001
  Receipt Date: 20181001
  Transmission Date: 20190204
  Serious: Yes (Hospitalization, Other)
  Sender: FDA-Public Use
  Company Number: None

PATIENT
  Age: 20 Year
  Sex: Male
  Weight: 71.1 kg

DRUGS (5)
  1. PRILOSEC [Concomitant]
     Active Substance: OMEPRAZOLE MAGNESIUM
  2. LUVOX [Concomitant]
     Active Substance: FLUVOXAMINE MALEATE
  3. LEVOFLOXACIN. [Suspect]
     Active Substance: LEVOFLOXACIN
     Indication: SINUSITIS
     Dates: start: 20180923, end: 20180924
  4. MIRALAX [Concomitant]
     Active Substance: POLYETHYLENE GLYCOL 3350
  5. ZANTAC [Concomitant]
     Active Substance: RANITIDINE HYDROCHLORIDE

REACTIONS (9)
  - Aggression [None]
  - Psychotic disorder [None]
  - Seizure [None]
  - Tremor [None]
  - Retinopathy [None]
  - Feeling abnormal [None]
  - Incoherent [None]
  - Inappropriate affect [None]
  - Dyskinesia [None]

NARRATIVE: CASE EVENT DATE: 20180923
